FAERS Safety Report 9985518 (Version 3)
Quarter: 2014Q2

REPORT INFORMATION
  Report Type: Report from Study
  Country: US (occurrence: US)
  Receive Date: 20140307
  Receipt Date: 20140407
  Transmission Date: 20141212
  Serious: Yes (Other)
  Sender: FDA-Public Use
  Company Number: PHEH2014US004324

PATIENT
  Sex: Female

DRUGS (8)
  1. TOBI PODHALER [Suspect]
     Dosage: UNK
     Dates: start: 20140205
  2. TOBI PODHALER [Suspect]
     Dosage: UNK
     Dates: start: 20140206
  3. ALBUTEROL [Concomitant]
     Dosage: UNK
  4. CEFTOMAX [Concomitant]
     Dosage: UNK
  5. CAYSTON [Concomitant]
     Dosage: UNK
  6. PULMOZYME [Concomitant]
     Dosage: UNK
  7. HYPERSOL B [Concomitant]
     Dosage: UNK
  8. TOBRAMYCIN [Concomitant]
     Dosage: UNK

REACTIONS (5)
  - Pulmonary function test decreased [Not Recovered/Not Resolved]
  - Chest discomfort [Not Recovered/Not Resolved]
  - Vestibular disorder [Not Recovered/Not Resolved]
  - Vertigo [Not Recovered/Not Resolved]
  - Oscillopsia [Not Recovered/Not Resolved]
